FAERS Safety Report 10531937 (Version 1)
Quarter: 2014Q4

REPORT INFORMATION
  Report Type: Spontaneous
  Country: US (occurrence: US)
  Receive Date: 20141021
  Receipt Date: 20141021
  Transmission Date: 20150529
  Serious: No
  Sender: FDA-Public Use
  Company Number: US-BAUSCH-BL-2014-004144

PATIENT
  Age: 67 Year
  Sex: Female
  Weight: 77.18 kg

DRUGS (1)
  1. LOTEMAX [Suspect]
     Active Substance: LOTEPREDNOL ETABONATE
     Indication: EYE INFECTION
     Dosage: 1 DROP IN RIGHT EYE EACH NIGHT
     Route: 047
     Dates: start: 201407

REACTIONS (2)
  - Eye pain [Unknown]
  - Eye discharge [Unknown]

NARRATIVE: CASE EVENT DATE: 201407
